FAERS Safety Report 16260041 (Version 2)
Quarter: 2019Q2

REPORT INFORMATION
  Report Type: Spontaneous
  Country: AU (occurrence: AU)
  Receive Date: 20190501
  Receipt Date: 20190510
  Transmission Date: 20190711
  Serious: Yes (Hospitalization, Other)
  Sender: FDA-Public Use
  Company Number: AU-MYLANLABS-2019M1035808

PATIENT
  Age: 36 Year
  Sex: Female

DRUGS (7)
  1. ERGOMETRINE [Suspect]
     Active Substance: ERGONOVINE MALEATE
     Indication: UTERINE ATONY
     Dosage: 250 INTERNATIONAL UNIT
     Route: 042
  2. SYNTOCINON [Suspect]
     Active Substance: OXYTOCIN
     Indication: LABOUR INDUCTION
     Dosage: UNK
     Route: 065
  3. FENTANYL. [Suspect]
     Active Substance: FENTANYL
     Indication: ANAESTHESIA
     Route: 065
  4. SYNTOCINON [Suspect]
     Active Substance: OXYTOCIN
     Indication: UTERINE ATONY
     Dosage: 5 U, UNK
     Route: 042
  5. BUPIVACAINE. [Suspect]
     Active Substance: BUPIVACAINE
     Indication: SPINAL ANAESTHESIA
     Route: 065
  6. SYNTOCINON [Suspect]
     Active Substance: OXYTOCIN
     Dosage: 40 U, UNK
     Route: 041
  7. CEFAZOLIN [Suspect]
     Active Substance: CEFAZOLIN
     Indication: ANTIBIOTIC PROPHYLAXIS
     Dosage: 2 GRAM
     Route: 042

REACTIONS (8)
  - Nausea [Unknown]
  - Head discomfort [Unknown]
  - Tachycardia [Recovered/Resolved]
  - Feeling hot [Unknown]
  - Discomfort [Unknown]
  - Atrial fibrillation [Recovered/Resolved]
  - Normal newborn [Recovered/Resolved]
  - Maternal exposure during delivery [Recovered/Resolved]
